FAERS Safety Report 19525202 (Version 3)
Quarter: 2021Q4

REPORT INFORMATION
  Report Type: Report from Study
  Country: NL (occurrence: NL)
  Receive Date: 20210712
  Receipt Date: 20211114
  Transmission Date: 20220303
  Serious: Yes (Other)
  Sender: FDA-Public Use
  Company Number: NL-ABBVIE-21K-114-3984222-00

PATIENT
  Age: 73 Year
  Sex: Male

DRUGS (2)
  1. CARBIDOPA\LEVODOPA [Suspect]
     Active Substance: CARBIDOPA\LEVODOPA
     Indication: Parkinson^s disease
     Dosage: MD: 11.0 ML, CD: 4.9  ML/H, ED: 2.0 ML
     Route: 050
     Dates: start: 20210607
  2. CARBIDOPA\LEVODOPA [Suspect]
     Active Substance: CARBIDOPA\LEVODOPA
     Dosage: MD: 9.0 ML, CD: 4.9 ML/H, ED: 2.0 ML?DOSAGE DECREASED
     Route: 050

REACTIONS (5)
  - Hip arthroplasty [Recovering/Resolving]
  - Arthralgia [Not Recovered/Not Resolved]
  - Fibroma [Recovered/Resolved]
  - Dyskinesia [Unknown]
  - Stoma site erythema [Unknown]

NARRATIVE: CASE EVENT DATE: 20210101
